FAERS Safety Report 10177182 (Version 2)
Quarter: 2014Q3

REPORT INFORMATION
  Report Type: Spontaneous
  Country: US (occurrence: US)
  Receive Date: 20140516
  Receipt Date: 20140703
  Transmission Date: 20150326
  Serious: Yes (Hospitalization)
  Sender: FDA-Public Use
  Company Number: US-PERRIGO-14US004728

PATIENT
  Age: 65 Year
  Sex: Female
  Weight: 74.83 kg

DRUGS (3)
  1. COPAXONE [Concomitant]
     Active Substance: GLATIRAMER ACETATE
     Indication: MULTIPLE SCLEROSIS
     Dosage: UNK, UNK
     Route: 065
     Dates: start: 2010
  2. LEVOTHYROXINE [Concomitant]
     Active Substance: LEVOTHYROXINE
     Indication: HYPOTHYROIDISM
     Dosage: UNK, UNK
     Route: 065
  3. TRPL ANTIBIOTIC OINT 067 [Suspect]
     Active Substance: BACITRACIN ZINC\NEOMYCIN\NEOMYCIN SULFATE\POLYMYXIN B SULFATE
     Indication: CONTUSION
     Dosage: SMALL APPLICATION, PRN
     Route: 061
     Dates: start: 20140415, end: 20140416

REACTIONS (13)
  - Staphylococcal infection [Recovered/Resolved]
  - Generalised erythema [Recovered/Resolved]
  - Skin warm [Recovered/Resolved]
  - Rash generalised [Recovering/Resolving]
  - Generalised oedema [Recovered/Resolved]
  - Dehydration [Recovered/Resolved]
  - Heart rate increased [Recovered/Resolved]
  - Blood pressure decreased [Recovered/Resolved]
  - Pruritus generalised [Recovered/Resolved]
  - Application site vesicles [Recovered/Resolved]
  - Pyrexia [Recovered/Resolved]
  - Skin exfoliation [Recovered/Resolved]
  - Off label use [Recovered/Resolved]

NARRATIVE: CASE EVENT DATE: 201404
